FAERS Safety Report 8210575-2 (Version None)
Quarter: 2012Q1

REPORT INFORMATION
  Report Type: 
  Country: None (occurrence: None)
  Receive Date: 20120314
  Receipt Date: 20120222
  Transmission Date: 20120608
  Serious: No
  Sender: FDA-Public Use
  Company Number: US-ASTRAZENECA-2012SE00585

PATIENT
  Age: 63 Year
  Sex: Male

DRUGS (6)
  1. CRESTOR [Concomitant]
  2. HYDROCODONE BITARTRATE AND ACETAMINOPHEN [Concomitant]
  3. TOPROL-XL [Suspect]
     Route: 048
  4. HYDROCODINE [Concomitant]
  5. BLOOD PRESSURE PILLS [Concomitant]
     Indication: BLOOD PRESSURE ABNORMAL
  6. DEPAKOTE [Concomitant]

REACTIONS (3)
  - ADVERSE DRUG REACTION [None]
  - FALL [None]
  - DIZZINESS [None]
